FAERS Safety Report 23180115 (Version 2)
Quarter: 2023Q4

REPORT INFORMATION
  Report Type: Report from Study
  Country: US (occurrence: US)
  Receive Date: 20231114
  Receipt Date: 20231226
  Transmission Date: 20240109
  Serious: No
  Sender: FDA-Public Use
  Company Number: US-AstraZeneca-CH-00501818A

PATIENT
  Sex: Male

DRUGS (2)
  1. ULTOMIRIS [Suspect]
     Active Substance: RAVULIZUMAB-CWVZ
     Indication: Paroxysmal nocturnal haemoglobinuria
     Dosage: UNK
     Route: 065
  2. SOLIRIS [Suspect]
     Active Substance: ECULIZUMAB
     Indication: Paroxysmal nocturnal haemoglobinuria
     Dosage: UNK
     Route: 041

REACTIONS (7)
  - Gastrointestinal pain [Unknown]
  - Platelet count decreased [Recovering/Resolving]
  - Pain [Recovering/Resolving]
  - Polyp [Unknown]
  - Weight increased [Unknown]
  - Off label use [Unknown]
  - Diarrhoea [Unknown]
